FAERS Safety Report 5448781-2 (Version None)
Quarter: 2007Q3

REPORT INFORMATION
  Report Type: 
  Country: None (occurrence: None)
  Receive Date: 20070911
  Receipt Date: 20070608
  Transmission Date: 20080115
  Serious: No
  Sender: FDA-Public Use
  Company Number: US-BRISTOL-MYERS SQUIBB COMPANY-13808324

PATIENT
  Age: 62 Year
  Sex: Female
  Weight: 49 kg

DRUGS (2)
  1. EMSAM [Suspect]
     Indication: DEPRESSION
     Dosage: EMSAM 6MG/24HOURS PATCH FOR 12 HOURS/DAY INSTEAD OF 24 HOURS
     Route: 062
     Dates: start: 20070607
  2. VALIUM [Concomitant]

REACTIONS (1)
  - APPLICATION SITE REACTION [None]
